FAERS Safety Report 25775198 (Version 2)
Quarter: 2025Q4

REPORT INFORMATION
  Report Type: Report from Study
  Country: CO (occurrence: CO)
  Receive Date: 20250909
  Receipt Date: 20251106
  Transmission Date: 20260117
  Serious: Yes (Other)
  Sender: ABBVIE
  Company Number: CO-JNJFOC-20250836835

PATIENT
  Age: 68 Year
  Sex: Female
  Weight: 56 kg

DRUGS (1)
  1. IMBRUVICA [Suspect]
     Active Substance: IBRUTINIB
     Indication: Chronic lymphocytic leukaemia
     Route: 048
     Dates: start: 20241202, end: 20250820

REACTIONS (3)
  - Pain in extremity [Not Recovered/Not Resolved]
  - Vasodilatation [Not Recovered/Not Resolved]
  - Bone disorder [Recovering/Resolving]

NARRATIVE: CASE EVENT DATE: 20250820
